FAERS Safety Report 8894861 (Version 1)
Quarter: 2012Q4

REPORT INFORMATION
  Report Type: 
  Country: CA (occurrence: CA)
  Receive Date: 20121107
  Receipt Date: 20121107
  Transmission Date: 20130627
  Serious: Yes (Other)
  Sender: FDA-Public Use
  Company Number: PHMT2006CA00915

PATIENT
  Sex: Female

DRUGS (5)
  1. SANDOSTATIN LAR [Suspect]
     Indication: CARCINOID TUMOUR
     Dosage: 30 mg, QMO
     Dates: start: 19990402
  2. ACTONEL [Concomitant]
  3. HYDROCHLOROTHIAZIDE [Concomitant]
  4. NOVO-ATENOL [Concomitant]
  5. SYNTHROID [Concomitant]

REACTIONS (26)
  - Pyrexia [Not Recovered/Not Resolved]
  - Night sweats [Not Recovered/Not Resolved]
  - Fatigue [Not Recovered/Not Resolved]
  - Hypertension [Unknown]
  - Blood pressure increased [Unknown]
  - Skin disorder [Unknown]
  - Hot flush [Unknown]
  - Injection site reaction [Unknown]
  - Injection site haemorrhage [Unknown]
  - Arthralgia [Unknown]
  - Pain in extremity [Unknown]
  - Flushing [Unknown]
  - Contusion [Unknown]
  - Vitreous floaters [Unknown]
  - Scleral discolouration [Unknown]
  - Pallor [Unknown]
  - Pain [Unknown]
  - Hyperhidrosis [Unknown]
  - Toothache [Unknown]
  - Eye disorder [Unknown]
  - Gastrooesophageal reflux disease [Unknown]
  - Abdominal pain [Unknown]
  - Injection site pain [Unknown]
  - Hyperglycaemia [Unknown]
  - Hypoglycaemia [Unknown]
  - Pruritus [Unknown]
